FAERS Safety Report 6603866-X (Version None)
Quarter: 2010Q1

REPORT INFORMATION
  Report Type: 
  Country: None (occurrence: None)
  Receive Date: 20100226
  Receipt Date: 20090224
  Transmission Date: 20100710
  Serious: No
  Sender: FDA-Public Use
  Company Number: A0770767A

PATIENT
  Sex: Female

DRUGS (3)
  1. LAMICTAL CD [Suspect]
  2. LITHIUM [Suspect]
  3. SEROQUEL [Concomitant]

REACTIONS (1)
  - TINNITUS [None]
